FAERS Safety Report 8143593-3 (Version None)
Quarter: 2012Q1

REPORT INFORMATION
  Report Type: 
  Country: None (occurrence: None)
  Receive Date: 20120217
  Receipt Date: 20111118
  Transmission Date: 20120608
  Serious: No
  Sender: FDA-Public Use
  Company Number: US-GLAXOSMITHKLINE-A0954802A

PATIENT
  Age: 66 Year
  Sex: Female

DRUGS (6)
  1. SIMVASTATIN [Concomitant]
  2. VOTRIENT [Suspect]
     Route: 065
     Dates: start: 20111101
  3. TARCEVA [Suspect]
     Indication: GLIOBLASTOMA
     Dosage: 100MG PER DAY
     Route: 048
     Dates: start: 20111108
  4. AFINITOR [Concomitant]
     Route: 065
     Dates: start: 20111101
  5. SEIZURE MEDICATION [Concomitant]
  6. TEMODAR [Concomitant]

REACTIONS (1)
  - CYSTITIS [None]
